FAERS Safety Report 15539713 (Version 1)
Quarter: 2018Q4

REPORT INFORMATION
  Report Type: Spontaneous
  Country: US (occurrence: US)
  Receive Date: 20181023
  Receipt Date: 20181023
  Transmission Date: 20190205
  Serious: No
  Sender: FDA-Public Use
  Company Number: US-BIOGEN-2018BI00647078

PATIENT
  Sex: Male

DRUGS (1)
  1. AVONEX [Suspect]
     Active Substance: INTERFERON BETA-1A
     Indication: MULTIPLE SCLEROSIS
     Route: 030

REACTIONS (6)
  - Intervertebral disc protrusion [Unknown]
  - Gait disturbance [Unknown]
  - Injection site mass [Unknown]
  - Confusional state [Unknown]
  - Disability [Unknown]
  - Injection site pain [Unknown]
